FAERS Safety Report 7771187-8 (Version None)
Quarter: 2011Q3

REPORT INFORMATION
  Report Type: 
  Country: None (occurrence: None)
  Receive Date: 20110922
  Receipt Date: 20110711
  Transmission Date: 20111222
  Serious: No
  Sender: FDA-Public Use
  Company Number: US-ASTRAZENECA-2011SE41336

PATIENT
  Age: 763 Month
  Sex: Female
  Weight: 81.6 kg

DRUGS (10)
  1. CYMBALTA [Concomitant]
  2. OMEPRAZOLE [Concomitant]
  3. SEROQUEL [Suspect]
     Indication: MAJOR DEPRESSION
     Route: 048
     Dates: start: 20100101, end: 20110601
  4. LEVOXYL [Concomitant]
  5. VERAPAMIL [Concomitant]
  6. SEROQUEL [Suspect]
     Route: 048
     Dates: start: 20110601
  7. ZOLOFT [Concomitant]
  8. NEURONTIN [Concomitant]
  9. NAPROXEN [Concomitant]
  10. SIMVASTATIN [Concomitant]

REACTIONS (3)
  - BALANCE DISORDER [None]
  - COGNITIVE DISORDER [None]
  - TREMOR [None]
